FAERS Safety Report 10153339 (Version 1)
Quarter: 2014Q2

REPORT INFORMATION
  Report Type: Spontaneous
  Country: US (occurrence: US)
  Receive Date: 20140505
  Receipt Date: 20140505
  Transmission Date: 20141212
  Serious: Yes (Hospitalization)
  Sender: FDA-Public Use
  Company Number: US-TEVA-478970USA

PATIENT
  Age: 87 Year
  Sex: Female

DRUGS (2)
  1. AZILECT [Suspect]
     Route: 048
  2. SINEMET [Concomitant]

REACTIONS (2)
  - Colitis [Not Recovered/Not Resolved]
  - Diarrhoea [Not Recovered/Not Resolved]
